FAERS Safety Report 12671466 (Version 18)
Quarter: 2019Q3

REPORT INFORMATION
  Report Type: Report from Study
  Country: CA (occurrence: CA)
  Receive Date: 20160822
  Receipt Date: 20190918
  Transmission Date: 20191004
  Serious: Yes (Hospitalization, Other)
  Sender: FDA-Public Use
  Company Number: PHHY2016CA059060

PATIENT
  Age: 68 Year
  Sex: Female

DRUGS (7)
  1. TEVA CANDESARTAN [Concomitant]
     Indication: PRODUCT USED FOR UNKNOWN INDICATION
     Dosage: 8 MG, QD (1 TAB DIE)
     Route: 048
  2. SANDOSTATIN [Suspect]
     Active Substance: OCTREOTIDE ACETATE
     Indication: CARCINOID TUMOUR
     Dosage: 50 UG, (TEST DOSE)
     Route: 058
     Dates: start: 20160322, end: 20160322
  3. SANDOSTATIN LAR DEPOT [Suspect]
     Active Substance: OCTREOTIDE ACETATE
     Dosage: 30 MG, QMO (ONCE A MONTH)
     Route: 030
     Dates: start: 20160517
  4. CANDESARTAN. [Concomitant]
     Active Substance: CANDESARTAN
     Indication: PRODUCT USED FOR UNKNOWN INDICATION
     Dosage: 4 MG, UNK
     Route: 048
  5. HYDROCHLOROTHIAZID [Concomitant]
     Active Substance: HYDROCHLOROTHIAZIDE
     Indication: PRODUCT USED FOR UNKNOWN INDICATION
     Dosage: 12.5 MG, UNK
     Route: 065
  6. SANDOSTATIN LAR DEPOT [Suspect]
     Active Substance: OCTREOTIDE ACETATE
     Indication: CARCINOID TUMOUR
     Dosage: 20 MG, QMO (EVERY 4 WEEKS)
     Route: 030
     Dates: start: 20160330, end: 20160427
  7. ONDANSETRON [Concomitant]
     Active Substance: ONDANSETRON
     Indication: PRODUCT USED FOR UNKNOWN INDICATION
     Dosage: 8 MG, BID (1 TAB EVERY 12 HOURS)
     Route: 048

REACTIONS (19)
  - Bradycardia [Unknown]
  - Fall [Unknown]
  - Alopecia [Unknown]
  - Heart rate irregular [Unknown]
  - Malaise [Recovering/Resolving]
  - Vomiting [Unknown]
  - Needle issue [Unknown]
  - Weight decreased [Unknown]
  - Nausea [Unknown]
  - Blood pressure diastolic decreased [Unknown]
  - Pain [Unknown]
  - Lethargy [Unknown]
  - Decreased appetite [Unknown]
  - Abdominal pain [Unknown]
  - Hepatic lesion [Unknown]
  - Cough [Unknown]
  - Blood pressure systolic increased [Unknown]
  - Constipation [Unknown]
  - Hip fracture [Unknown]

NARRATIVE: CASE EVENT DATE: 20160409
